FAERS Safety Report 6836918-X (Version None)
Quarter: 2010Q3

REPORT INFORMATION
  Report Type: 
  Country: None (occurrence: None)
  Receive Date: 20100713
  Receipt Date: 20070502
  Transmission Date: 20110219
  Serious: No
  Sender: FDA-Public Use
  Company Number: US-PFIZER INC-2007036196

PATIENT
  Sex: Female
  Weight: 77.272 kg

DRUGS (7)
  1. CHANTIX [Suspect]
     Indication: SMOKING CESSATION THERAPY
     Dates: start: 20070421
  2. POTASSIUM [Concomitant]
  3. LOTREL [Concomitant]
  4. FUROSEMIDE [Concomitant]
  5. ADVAIR DISKUS 100/50 [Concomitant]
  6. TIOTROPIUM BROMIDE [Concomitant]
  7. ACETYLSALICYLIC ACID [Concomitant]

REACTIONS (2)
  - HICCUPS [None]
  - NAUSEA [None]
